FAERS Safety Report 8124088-X (Version None)
Quarter: 2012Q1

REPORT INFORMATION
  Report Type: 
  Country: None (occurrence: None)
  Receive Date: 20120209
  Receipt Date: 20120203
  Transmission Date: 20120608
  Serious: Yes (Other)
  Sender: FDA-Public Use
  Company Number: US-PFIZER INC-2011195319

PATIENT
  Sex: Female

DRUGS (3)
  1. CLOBETASOL [Concomitant]
     Indication: PSORIASIS
     Dosage: UNK
     Dates: start: 20060502
  2. CHANTIX [Suspect]
     Indication: SMOKING CESSATION THERAPY
     Dosage: 0.5 MG, UNK
     Dates: start: 20070604
  3. CHANTIX [Suspect]
     Dosage: 1 MG, UNK
     Dates: end: 20071101

REACTIONS (4)
  - ANXIETY [None]
  - MENTAL DISORDER [None]
  - DEPRESSION [None]
  - AGGRESSION [None]
